FAERS Safety Report 21411324 (Version 10)
Quarter: 2024Q4

REPORT INFORMATION
  Report Type: Spontaneous
  Country: US (occurrence: US)
  Receive Date: 20221005
  Receipt Date: 20241023
  Transmission Date: 20250115
  Serious: Yes (Hospitalization, Other)
  Sender: PFIZER
  Company Number: US-PFIZER INC-PV202200075750

PATIENT
  Age: 68 Year
  Sex: Female
  Weight: 96.599 kg

DRUGS (4)
  1. IBRANCE [Suspect]
     Active Substance: PALBOCICLIB
     Indication: Breast cancer female
     Dosage: 125 MG
     Route: 048
     Dates: start: 202205
  2. IBRANCE [Suspect]
     Active Substance: PALBOCICLIB
     Dosage: 100 MG, CYCLIC (ONCE A DAY FOR 3 WEEKS THEN 1 WEEK OFF, THEN REPEATS)
     Route: 048
     Dates: start: 2022
  3. IBRANCE [Suspect]
     Active Substance: PALBOCICLIB
     Dosage: 100 MG, DAILY
     Route: 048
  4. IBRANCE [Suspect]
     Active Substance: PALBOCICLIB
     Dosage: 100 MG TABLETS, DAILY, 21 DAYS ON, 7 DAYS OFF
     Route: 048

REACTIONS (19)
  - Abdominal pain upper [Not Recovered/Not Resolved]
  - Neuropathic muscular atrophy [Recovered/Resolved]
  - Herpes zoster [Not Recovered/Not Resolved]
  - Muscle twitching [Recovered/Resolved]
  - Visual impairment [Not Recovered/Not Resolved]
  - Tremor [Recovered/Resolved]
  - Eating disorder [Recovered/Resolved]
  - Immune system disorder [Unknown]
  - Nasopharyngitis [Unknown]
  - Respiratory syncytial virus infection [Recovered/Resolved]
  - Eye infection [Not Recovered/Not Resolved]
  - Gout [Not Recovered/Not Resolved]
  - Gastrooesophageal reflux disease [Not Recovered/Not Resolved]
  - Rash [Unknown]
  - Eye disorder [Unknown]
  - Feeling abnormal [Unknown]
  - Gastrointestinal disorder [Not Recovered/Not Resolved]
  - Off label use [Unknown]
  - Neoplasm progression [Unknown]

NARRATIVE: CASE EVENT DATE: 20220101
